FAERS Safety Report 8346592-1 (Version None)
Quarter: 2012Q2

REPORT INFORMATION
  Report Type: 
  Country: None (occurrence: None)
  Receive Date: 20120509
  Receipt Date: 20120503
  Transmission Date: 20120825
  Serious: Yes (Other)
  Sender: FDA-Public Use
  Company Number: PHHY2012CA031216

PATIENT
  Sex: Male

DRUGS (2)
  1. SANDOSTATIN LAR [Suspect]
     Indication: METASTATIC CARCINOID TUMOUR
     Dosage: 20 MG, UNK
     Route: 030
     Dates: start: 20110420
  2. SANDOSTATIN LAR [Suspect]
     Dosage: 30 MG, QMO
     Dates: start: 20120408

REACTIONS (6)
  - ASTHMA [None]
  - MALAISE [None]
  - INSOMNIA [None]
  - CHOKING [None]
  - EATING DISORDER [None]
  - DYSPNOEA [None]
